FAERS Safety Report 8844444 (Version 4)
Quarter: 2013Q2

REPORT INFORMATION
  Report Type: Report from Study
  Country: PY (occurrence: PY)
  Receive Date: 20121017
  Receipt Date: 20130605
  Transmission Date: 20140414
  Serious: Yes (Hospitalization, Other)
  Sender: FDA-Public Use
  Company Number: PHHY2012PY088509

PATIENT
  Sex: Female
  Weight: 60 kg

DRUGS (2)
  1. GLIVEC [Suspect]
     Indication: CHRONIC MYELOID LEUKAEMIA
     Dosage: 600 MG, QD
     Dates: start: 20040223
  2. GLIVEC [Suspect]
     Dosage: 400 MG, DAILY
     Route: 048
     Dates: start: 20130223, end: 20130530

REACTIONS (10)
  - Lung disorder [Unknown]
  - Sepsis [Unknown]
  - Splenomegaly [Unknown]
  - Neoplasm recurrence [Unknown]
  - White blood cell count increased [Unknown]
  - Basophil percentage increased [Unknown]
  - Haemoglobin decreased [Unknown]
  - Platelet count increased [Unknown]
  - Maternal exposure during pregnancy [Unknown]
  - Normal newborn [Unknown]
